FAERS Safety Report 10547961 (Version 1)
Quarter: 2014Q4

REPORT INFORMATION
  Report Type: Spontaneous
  Country: US (occurrence: None)
  Receive Date: 20141027
  Receipt Date: 20141027
  Transmission Date: 20150529
  Serious: No
  Sender: FDA-Public Use
  Company Number: None

PATIENT
  Age: 25 Year
  Sex: Male
  Weight: 70.31 kg

DRUGS (1)
  1. AMPHETAMINE, DEXTROAMPHETAMINE [Suspect]
     Active Substance: AMPHETAMINE ASPARTATE\DEXTROAMPHETAMINE SACCHARATE
     Indication: ATTENTION DEFICIT/HYPERACTIVITY DISORDER
     Dosage: 1/2 PILL
     Route: 048

REACTIONS (6)
  - Disturbance in attention [None]
  - Product substitution issue [None]
  - Nausea [None]
  - Anxiety [None]
  - Hot flush [None]
  - Product quality issue [None]

NARRATIVE: CASE EVENT DATE: 20141013
